FAERS Safety Report 10026550 (Version 1)
Quarter: 2014Q1

REPORT INFORMATION
  Report Type: Spontaneous
  Country: US (occurrence: US)
  Receive Date: 20140321
  Receipt Date: 20140321
  Transmission Date: 20141002
  Serious: Yes (Hospitalization)
  Sender: FDA-Public Use
  Company Number: US-BIOGENIDEC-2014BI024153

PATIENT
  Age: 50 Year
  Sex: Male

DRUGS (2)
  1. TECFIDERA [Suspect]
     Indication: MULTIPLE SCLEROSIS
     Route: 048
     Dates: start: 20131009, end: 20131201
  2. TECFIDERA [Suspect]
     Indication: MULTIPLE SCLEROSIS
     Route: 048
     Dates: start: 20140217

REACTIONS (4)
  - Multiple sclerosis relapse [Unknown]
  - Flushing [Unknown]
  - Diarrhoea [Unknown]
  - Prescribed underdose [Recovered/Resolved]
